FAERS Safety Report 5417128-X (Version None)
Quarter: 2007Q3

REPORT INFORMATION
  Report Type: 
  Country: None (occurrence: None)
  Receive Date: 20070718
  Receipt Date: 20060630
  Transmission Date: 20080115
  Serious: Yes (Hospitalization, Other)
  Sender: FDA-Public Use
  Company Number: 2005134602

PATIENT
  Age: 61 Year
  Sex: Male
  Weight: 79.8331 kg

DRUGS (2)
  1. CELEBREX [Suspect]
     Indication: ARTHRALGIA
     Dosage: 20 MG (200 MG, 1 IN 1 D)
     Dates: start: 20000601
  2. BEXTRA [Suspect]
     Indication: ARTHRALGIA
     Dosage: 10 MG (10 MG, 1 IN 1 D)
     Dates: start: 20020722

REACTIONS (1)
  - EMBOLISM [None]
